FAERS Safety Report 8930187 (Version 1)
Quarter: 2012Q4

REPORT INFORMATION
  Report Type: 
  Country: CO (occurrence: CO)
  Receive Date: 20121128
  Receipt Date: 20121128
  Transmission Date: 20130627
  Serious: Yes (Death)
  Sender: FDA-Public Use
  Company Number: CO-COVIDIEN/TYCO HEALTHCARE/MALLINCKRODT-T201204146

PATIENT
  Age: 78 Year
  Sex: Female

DRUGS (1)
  1. OPTIRAY [Suspect]
     Indication: COMPUTERISED TOMOGRAM
     Dosage: 75 ml, single
     Dates: start: 20121118, end: 20121118

REACTIONS (2)
  - Anaphylactic shock [Fatal]
  - Salivary hypersecretion [Unknown]
